FAERS Safety Report 21697269 (Version 2)
Quarter: 2023Q1

REPORT INFORMATION
  Report Type: Spontaneous
  Country: US (occurrence: US)
  Receive Date: 20221208
  Receipt Date: 20230117
  Transmission Date: 20230418
  Serious: No
  Sender: FDA-Public Use
  Company Number: US-UNITED THERAPEUTICS-UNT-2022-029763

PATIENT
  Age: 77 Year
  Sex: Female
  Weight: 52.154 kg

DRUGS (5)
  1. TYVASO DPI [Suspect]
     Active Substance: TREPROSTINIL
     Indication: Pulmonary arterial hypertension
     Dosage: UNK
     Dates: start: 20221212
  2. TYVASO DPI [Suspect]
     Active Substance: TREPROSTINIL
     Dosage: 64 ?G, QID
     Dates: start: 202212
  3. TYVASO DPI [Suspect]
     Active Substance: TREPROSTINIL
     Dosage: 48 ?G, QID
  4. TYVASO DPI [Suspect]
     Active Substance: TREPROSTINIL
     Indication: Pulmonary arterial hypertension
     Dosage: UNK
  5. TYVASO DPI [Suspect]
     Active Substance: TREPROSTINIL
     Indication: Pulmonary arterial hypertension
     Dosage: UNK

REACTIONS (5)
  - Cough [Not Recovered/Not Resolved]
  - Dyspnoea exertional [Not Recovered/Not Resolved]
  - Therapy non-responder [Unknown]
  - Throat irritation [Unknown]
  - Weight decreased [Unknown]

NARRATIVE: CASE EVENT DATE: 20221201
